FAERS Safety Report 7442468-2 (Version None)
Quarter: 2011Q2

REPORT INFORMATION
  Report Type: 
  Country: None (occurrence: None)
  Receive Date: 20110428
  Receipt Date: 20110426
  Transmission Date: 20111010
  Serious: No
  Sender: FDA-Public Use
  Company Number: US-PFIZER INC-2011090381

PATIENT
  Sex: Male

DRUGS (2)
  1. ADVIL [Suspect]
     Indication: MUSCLE INJURY
  2. ADVIL [Suspect]
     Indication: MUSCLE SPASMS
     Dosage: 200 MG, 1X/DAY
     Route: 048
     Dates: start: 20110401

REACTIONS (1)
  - URINE OUTPUT DECREASED [None]
